FAERS Safety Report 20872589 (Version 1)
Quarter: 2022Q2

REPORT INFORMATION
  Report Type: Report from Study
  Country: DE (occurrence: DE)
  Receive Date: 20220525
  Receipt Date: 20220525
  Transmission Date: 20220721
  Serious: Yes (Hospitalization)
  Sender: FDA-Public Use
  Company Number: DE-MYLANLABS-2022M1038397

PATIENT
  Age: 20 Day
  Sex: Female

DRUGS (3)
  1. VORICONAZOLE [Suspect]
     Active Substance: VORICONAZOLE
     Indication: Aspergillus infection
     Dosage: UNK
     Route: 065
  2. HYDROCORTISONE [Suspect]
     Active Substance: HYDROCORTISONE
     Indication: Hypotension
     Dosage: UNK
     Route: 065
  3. BETAMETHASONE [Suspect]
     Active Substance: BETAMETHASONE
     Indication: Product used for unknown indication
     Dosage: UNK
     Route: 064

REACTIONS (2)
  - Aspergillus infection [Recovered/Resolved]
  - Hepatotoxicity [Unknown]
